FAERS Safety Report 7228226-2 (Version None)
Quarter: 2011Q1

REPORT INFORMATION
  Report Type: 
  Country: None (occurrence: None)
  Receive Date: 20110114
  Receipt Date: 20110105
  Transmission Date: 20110831
  Serious: Yes (Other)
  Sender: FDA-Public Use
  Company Number: US-ASTRAZENECA-2011SE00559

PATIENT
  Age: 29 Year
  Sex: Female
  Weight: 56.7 kg

DRUGS (3)
  1. LITHIUM CARBONATE [Concomitant]
  2. SEROQUEL [Suspect]
     Indication: BIPOLAR DISORDER
     Route: 048
     Dates: end: 20090101
  3. SEROQUEL [Suspect]
     Route: 048
     Dates: start: 20101201

REACTIONS (4)
  - BRAIN NEOPLASM [None]
  - PANIC ATTACK [None]
  - HALLUCINATION [None]
  - STRESS [None]
